FAERS Safety Report 15407754 (Version 1)
Quarter: 2018Q3

REPORT INFORMATION
  Report Type: Spontaneous
  Country: PT (occurrence: PT)
  Receive Date: 20180920
  Receipt Date: 20180920
  Transmission Date: 20181010
  Serious: Yes (Other)
  Sender: FDA-Public Use
  Company Number: PT-JNJFOC-20180915372

PATIENT
  Age: 31 Year
  Sex: Male

DRUGS (1)
  1. SIMPONI [Suspect]
     Active Substance: GOLIMUMAB
     Indication: SPONDYLITIS
     Route: 058
     Dates: start: 20170215, end: 20180228

REACTIONS (1)
  - Cytomegalovirus mononucleosis [Recovering/Resolving]

NARRATIVE: CASE EVENT DATE: 20180217
